FAERS Safety Report 4872451-2 (Version None)
Quarter: 2005Q4

REPORT INFORMATION
  Report Type: 
  Country: None (occurrence: None)
  Receive Date: 20051201
  Receipt Date: 20050802
  Transmission Date: 20060501
  Serious: No
  Sender: FDA-Public Use
  Company Number: 2005PV000818

PATIENT
  Age: 47 Year
  Sex: Female
  Weight: 107.0489 kg

DRUGS (8)
  1. BYETTA [Suspect]
     Indication: DIABETES MELLITUS NON-INSULIN-DEPENDENT
     Dosage: 5 MCG;BID;SC
     Route: 058
     Dates: start: 20050729
  2. TOPROL-XL [Concomitant]
  3. METHIMAZOLE [Concomitant]
  4. HYDROCHLOROTHIAZIDE [Concomitant]
  5. METFORMIN HCL [Concomitant]
  6. FLEXAMIN [Concomitant]
  7. DARVOCET-N 50 [Concomitant]
  8. COLLAGEN SHOT [Concomitant]

REACTIONS (5)
  - BLOOD GLUCOSE INCREASED [None]
  - BODY TEMPERATURE DECREASED [None]
  - FEELING COLD [None]
  - RECTAL HAEMORRHAGE [None]
  - SOMNOLENCE [None]
